FAERS Safety Report 6406823-1 (Version None)
Quarter: 2009Q4

REPORT INFORMATION
  Report Type: 
  Country: None (occurrence: None)
  Receive Date: 20091020
  Receipt Date: 20091009
  Transmission Date: 20100525
  Serious: Yes (Other)
  Sender: FDA-Public Use
  Company Number: US-PFIZER INC-2009282970

PATIENT
  Sex: Female
  Weight: 55.338 kg

DRUGS (5)
  1. LIPITOR [Suspect]
     Indication: BLOOD CHOLESTEROL
     Dosage: 10 MG, 1X/DAY
  2. LISINOPRIL [Concomitant]
     Dosage: UNK
  3. SYNTHROID [Concomitant]
     Dosage: 0.1 MG, UNK
  4. HYDROXYZINE [Concomitant]
     Dosage: UNK
  5. FLUOXETINE [Concomitant]
     Dosage: UNK

REACTIONS (3)
  - BODY HEIGHT DECREASED [None]
  - GLAUCOMA [None]
  - PRURITUS [None]
